FAERS Safety Report 5283276-0 (Version None)
Quarter: 2007Q1

REPORT INFORMATION
  Report Type: 
  Country: None (occurrence: None)
  Receive Date: 20070327
  Receipt Date: 20070313
  Transmission Date: 20070707
  Serious: Yes (Other)
  Sender: FDA-Public Use
  Company Number: THYR-10402

PATIENT
  Age: 77 Year
  Sex: Male

DRUGS (4)
  1. THYROGEN [Suspect]
     Indication: DRUG USE FOR UNKNOWN INDICATION
     Dosage: 0.9 MG DAILY IM
     Route: 030
     Dates: start: 20060601, end: 20060601
  2. THYROGEN [Suspect]
     Indication: THERAPEUTIC PROCEDURE
     Dosage: 0.9 MG DAILY IM
     Route: 030
     Dates: start: 20060601, end: 20060601
  3. THYROGEN [Suspect]
     Indication: DRUG USE FOR UNKNOWN INDICATION
     Dosage: 0.9 MG DAILY IM
     Route: 030
     Dates: start: 20070101, end: 20070101
  4. THYROGEN [Suspect]
     Indication: THERAPEUTIC PROCEDURE
     Dosage: 0.9 MG DAILY IM
     Route: 030
     Dates: start: 20070101, end: 20070101

REACTIONS (2)
  - NEUTROPENIA [None]
  - WHITE BLOOD CELL COUNT DECREASED [None]
